FAERS Safety Report 7396428-0 (Version None)
Quarter: 2011Q2

REPORT INFORMATION
  Report Type: 
  Country: None (occurrence: None)
  Receive Date: 20110406
  Receipt Date: 20110324
  Transmission Date: 20111010
  Serious: Yes (Death, Hospitalization)
  Sender: FDA-Public Use
  Company Number: JP-SANOFI-AVENTIS-2011SA018175

PATIENT
  Age: 43 Year
  Sex: Male
  Weight: 45 kg

DRUGS (9)
  1. TS-1 [Suspect]
     Route: 048
     Dates: start: 20110114, end: 20110118
  2. TS-1 [Suspect]
     Route: 048
     Dates: start: 20101123, end: 20101207
  3. ELPLAT [Suspect]
     Indication: RECTAL CANCER
     Route: 042
     Dates: start: 20100920, end: 20110104
  4. TS-1 [Suspect]
     Indication: RECTAL CANCER
     Route: 048
     Dates: start: 20100920, end: 20101004
  5. BEVACIZUMAB [Suspect]
     Indication: RECTAL CANCER
     Route: 042
     Dates: start: 20100920, end: 20110104
  6. TS-1 [Suspect]
     Route: 048
     Dates: start: 20101012, end: 20101026
  7. TS-1 [Suspect]
     Route: 048
     Dates: start: 20101101, end: 20101115
  8. DEXAMETHASONE [Concomitant]
     Indication: PROPHYLAXIS OF NAUSEA AND VOMITING
     Route: 048
     Dates: start: 20100920, end: 20110107
  9. KYTRIL [Concomitant]
     Indication: PROPHYLAXIS OF NAUSEA AND VOMITING
     Route: 048
     Dates: start: 20100920, end: 20110104

REACTIONS (1)
  - CHOLANGITIS SCLEROSING [None]
